FAERS Safety Report 18944021 (Version 1)
Quarter: 2021Q1

REPORT INFORMATION
  Report Type: Spontaneous
  Country: US (occurrence: US)
  Receive Date: 20210225
  Receipt Date: 20210225
  Transmission Date: 20210420
  Serious: No
  Sender: FDA-Public Use
  Company Number: None

PATIENT
  Sex: Female

DRUGS (5)
  1. SERTRALINE 25MG TABLET [Suspect]
     Active Substance: SERTRALINE HYDROCHLORIDE
     Dosage: ?          QUANTITY:2 TABLET(S);?
     Route: 048
     Dates: start: 20210222
  2. VITAMIN B COMPLEX [Concomitant]
     Active Substance: CYANOCOBALAMIN\DEXPANTHENOL\NIACINAMIDE\PYRIDOXINE HYDROCHLORIDE\RIBOFLAVIN 5^-PHOSPHATE SODIUM\THIAMINE HYDROCHLORIDE\VITAMIN B COMPLEX
  3. IRON [Concomitant]
     Active Substance: IRON
  4. VITAMIN C [Concomitant]
     Active Substance: ASCORBIC ACID
  5. TURMERIC [Concomitant]
     Active Substance: HERBALS\TURMERIC

REACTIONS (8)
  - Insomnia [None]
  - Hyperhidrosis [None]
  - Palpitations [None]
  - Eye disorder [None]
  - Body temperature increased [None]
  - Product substitution issue [None]
  - Muscle twitching [None]
  - Restlessness [None]

NARRATIVE: CASE EVENT DATE: 20210222
